FAERS Safety Report 13759039 (Version 1)
Quarter: 2017Q3

REPORT INFORMATION
  Report Type: Report from Study
  Country: JP (occurrence: JP)
  Receive Date: 20170717
  Receipt Date: 20170717
  Transmission Date: 20171127
  Serious: Yes (Hospitalization)
  Sender: FDA-Public Use
  Company Number: JP-VIFOR (INTERNATIONAL) INC.-VIT-2017-07619

PATIENT
  Age: 73 Year
  Sex: Female
  Weight: 77 kg

DRUGS (15)
  1. PIMOBENDAN [Concomitant]
     Active Substance: PIMOBENDAN
     Route: 048
  2. NESP [Concomitant]
     Active Substance: DARBEPOETIN ALFA
  3. FOSRENOL [Concomitant]
     Active Substance: LANTHANUM CARBONATE
     Indication: HYPERPHOSPHATAEMIA
     Route: 048
     Dates: end: 20170111
  4. PICOSULFATE [Concomitant]
     Active Substance: SODIUM PICOSULFATE
     Route: 048
  5. DOPS [Concomitant]
     Active Substance: DROXIDOPA
     Route: 048
  6. TSUMURA [Concomitant]
     Route: 048
  7. REGPARA [Concomitant]
     Active Substance: CINACALCET HYDROCHLORIDE
     Route: 048
  8. BI SIFROL [Concomitant]
     Active Substance: PRAMIPEXOLE
     Route: 048
  9. PURSENNID [Concomitant]
     Active Substance: SENNOSIDES A AND B
     Route: 048
  10. VELPHORO [Suspect]
     Active Substance: FERRIC OXYHYDROXIDE
     Indication: HYPERPHOSPHATAEMIA
     Route: 048
     Dates: start: 20161221, end: 20170111
  11. NEXIUM [Concomitant]
     Active Substance: ESOMEPRAZOLE MAGNESIUM
     Route: 048
  12. METLIGINE [Concomitant]
     Active Substance: MIDODRINE HYDROCHLORIDE
     Route: 048
  13. KAYEXALATE [Concomitant]
     Active Substance: SODIUM POLYSTYRENE SULFONATE
     Route: 048
     Dates: end: 20170111
  14. PROMAC [Concomitant]
     Active Substance: NITROFURANTOIN
     Route: 048
  15. OXAROL [Concomitant]
     Active Substance: MAXACALCITOL

REACTIONS (3)
  - Intestinal obstruction [Recovered/Resolved]
  - Vomiting [Unknown]
  - Nausea [Unknown]

NARRATIVE: CASE EVENT DATE: 2017
